FAERS Safety Report 24759970 (Version 1)
Quarter: 2024Q4

REPORT INFORMATION
  Report Type: Spontaneous
  Country: US (occurrence: US)
  Receive Date: 20241220
  Receipt Date: 20241220
  Transmission Date: 20250115
  Serious: Yes (Death)
  Sender: RECKITT BENCKISER
  Company Number: US-INDIVIOR US-INDV-156518-2024

PATIENT
  Sex: Male

DRUGS (2)
  1. OPVEE [Suspect]
     Active Substance: NALMEFENE HYDROCHLORIDE
     Indication: Overdose
     Dosage: 2.7 MILLIGRAM, ONE TIME DOSE
     Route: 045
  2. OPVEE [Suspect]
     Active Substance: NALMEFENE HYDROCHLORIDE
     Dosage: 2.7 MILLIGRAM, ONE TIME DOSE
     Route: 045

REACTIONS (1)
  - Therapy non-responder [Fatal]

NARRATIVE: CASE EVENT DATE: 20240819
